FAERS Safety Report 23789933 (Version 1)
Quarter: 2024Q2

REPORT INFORMATION
  Report Type: Spontaneous
  Country: US (occurrence: None)
  Receive Date: 20240424
  Receipt Date: 20240424
  Transmission Date: 20240715
  Serious: Yes (Hospitalization)
  Sender: FDA-Public Use
  Company Number: None

PATIENT
  Age: 73 Year
  Sex: Male

DRUGS (1)
  1. METOPROLOL SUCCINATE [Suspect]
     Active Substance: METOPROLOL SUCCINATE
     Indication: Ventricular extrasystoles
     Dosage: 100 UNIT EVERY DAY PO?
     Route: 048
     Dates: start: 20240103, end: 20240124

REACTIONS (14)
  - Abdominal pain [None]
  - Haematuria [None]
  - Vomiting [None]
  - Retroperitoneal haemorrhage [None]
  - Flank pain [None]
  - Subcapsular renal haematoma [None]
  - Hydronephrosis [None]
  - Diverticulum intestinal [None]
  - Diverticulitis [None]
  - Haemoglobin decreased [None]
  - Acute myocardial infarction [None]
  - Sinus tachycardia [None]
  - Left ventricular hypertrophy [None]
  - Therapy interrupted [None]

NARRATIVE: CASE EVENT DATE: 20240125
